FAERS Safety Report 22246479 (Version 1)
Quarter: 2023Q2

REPORT INFORMATION
  Report Type: Spontaneous
  Country: RO (occurrence: None)
  Receive Date: 20230424
  Receipt Date: 20230424
  Transmission Date: 20230721
  Serious: Yes (Life-Threatening)
  Sender: FDA-Public Use
  Company Number: 2023A067329

PATIENT
  Age: 26011 Day
  Sex: Male

DRUGS (17)
  1. IMFINZI [Suspect]
     Active Substance: DURVALUMAB
     Indication: Bronchopulmonary disease
     Route: 042
     Dates: start: 20220819, end: 20221101
  2. IMFINZI [Suspect]
     Active Substance: DURVALUMAB
     Indication: Bronchopulmonary disease
     Route: 042
     Dates: start: 20221101, end: 20230306
  3. ASPIRIN [Concomitant]
     Active Substance: ASPIRIN
  4. SPIRONOLACTONE [Concomitant]
     Active Substance: SPIRONOLACTONE
  5. PANANGIN FORTE [Concomitant]
  6. FUROSEMIDE [Concomitant]
     Active Substance: FUROSEMIDE
  7. NEBIVOLOL [Concomitant]
     Active Substance: NEBIVOLOL
  8. IVABRADINE HYDROCHLORIDE [Concomitant]
     Active Substance: IVABRADINE HYDROCHLORIDE
  9. ATORVASTATIN [Concomitant]
     Active Substance: ATORVASTATIN
  10. CONTROLOC [Concomitant]
     Active Substance: PANTOPRAZOLE SODIUM
  11. SUBLINGUAL NITROGLYCERIN [Concomitant]
  12. PACLITAXEL/CARBOPLATIN [Concomitant]
  13. DEXAMETHASONE [Concomitant]
     Active Substance: DEXAMETHASONE
  14. VALACYCLOVIR [Concomitant]
     Active Substance: VALACYCLOVIR HYDROCHLORIDE
  15. ACYCLOVIR [Concomitant]
     Active Substance: ACYCLOVIR
  16. SULFAMETHOXAZOLE [Concomitant]
     Active Substance: SULFAMETHOXAZOLE
  17. METOCLOPRAMIDE [Concomitant]
     Active Substance: METOCLOPRAMIDE

REACTIONS (6)
  - Cholestasis [Unknown]
  - Autoimmune hepatitis [Recovering/Resolving]
  - Hyperglycaemia [Unknown]
  - Dyslipidaemia [Unknown]
  - Hepatic cytolysis [Unknown]
  - Herpes zoster [Unknown]

NARRATIVE: CASE EVENT DATE: 20221128
